FAERS Safety Report 8491234-8 (Version None)
Quarter: 2012Q3

REPORT INFORMATION
  Report Type: 
  Country: None (occurrence: None)
  Receive Date: 20120706
  Receipt Date: 20120622
  Transmission Date: 20120928
  Serious: Yes (Other)
  Sender: FDA-Public Use
  Company Number: PHHY2012DE057222

PATIENT
  Sex: Female

DRUGS (2)
  1. TAMOXIFEN CITRATE [Concomitant]
     Dosage: UNK UKN, UNK
     Route: 065
     Dates: start: 20111201
  2. ZOMETA [Suspect]
     Dosage: UNK UKN, UNK
     Route: 065
     Dates: start: 20110601

REACTIONS (5)
  - LIVER DISORDER [None]
  - IRITIS [None]
  - AUTOIMMUNE DISORDER [None]
  - UVEITIS [None]
  - GAMMA-GLUTAMYLTRANSFERASE INCREASED [None]
